FAERS Safety Report 6833760-0 (Version None)
Quarter: 2010Q3

REPORT INFORMATION
  Report Type: 
  Country: None (occurrence: None)
  Receive Date: 20100712
  Receipt Date: 20070402
  Transmission Date: 20110219
  Serious: No
  Sender: FDA-Public Use
  Company Number: US-PFIZER INC-2007027285

PATIENT
  Sex: Female
  Weight: 108.86 kg

DRUGS (4)
  1. CHANTIX [Suspect]
     Indication: SMOKING CESSATION THERAPY
     Dosage: 0.5 MH
     Dates: start: 20070307
  2. WELLBUTRIN [Suspect]
     Indication: SMOKING CESSATION THERAPY
     Dates: start: 20070307
  3. WELLBUTRIN [Suspect]
     Indication: DEPRESSION
  4. ADIPEX [Concomitant]
     Indication: WEIGHT DECREASED

REACTIONS (3)
  - DEPRESSION [None]
  - DRUG SCREEN POSITIVE [None]
  - TOOTH EXTRACTION [None]
